FAERS Safety Report 9650522 (Version 1)
Quarter: 2013Q4

REPORT INFORMATION
  Report Type: Spontaneous
  Country: CH (occurrence: CH)
  Receive Date: 20131029
  Receipt Date: 20131029
  Transmission Date: 20140711
  Serious: Yes (Hospitalization, Other)
  Sender: FDA-Public Use
  Company Number: CH-009507513-1310CHE011506

PATIENT
  Age: 58 Year
  Sex: Female

DRUGS (7)
  1. FOSAVANCE [Suspect]
     Indication: PROPHYLAXIS
     Dosage: UNK, QW
     Route: 048
     Dates: start: 20100701, end: 20131011
  2. VOLTFAST [Concomitant]
     Dosage: 50 MG, QD
  3. DAFALGAN [Concomitant]
     Dosage: 1 G, PRN
  4. COAPROVEL [Concomitant]
     Dosage: 1 DF, QD
  5. CALCIMAGON D3 [Concomitant]
  6. RIOPAN [Concomitant]
     Dosage: UNK, PRN
  7. SPIRIVA [Concomitant]
     Dosage: UNK, PRN

REACTIONS (1)
  - Femur fracture [Recovering/Resolving]
